FAERS Safety Report 4557232-1 (Version None)
Quarter: 2005Q1

REPORT INFORMATION
  Report Type: 
  Country: None (occurrence: None)
  Receive Date: 20050118
  Receipt Date: 20050104
  Transmission Date: 20050727
  Serious: Yes (Hospitalization)
  Sender: FDA-Public Use
  Company Number: S05-FRA-00144-01

PATIENT
  Age: 91 Year
  Sex: Female

DRUGS (10)
  1. MEMANTINE HCL [Suspect]
     Dosage: 20 MG QD PO
     Route: 048
     Dates: start: 20040915, end: 20041111
  2. MEMANTINE HCL [Suspect]
     Dosage: 10 MG QOD PO
     Route: 048
     Dates: start: 20041112, end: 20041116
  3. BUSPAR [Concomitant]
  4. CETORNAN (ORNITHINE OXOGLURATE) [Concomitant]
  5. ARICEPT [Concomitant]
  6. TAREG (VALSARTAN) [Concomitant]
  7. KARDEGIC (ACETYLSALICYLATE LYSINE) [Concomitant]
  8. HAVLANE (LOPRAZOLAM MESILATE) [Concomitant]
  9. CORDARONE [Concomitant]
  10. AMARYL [Concomitant]

REACTIONS (2)
  - DYSKINESIA [None]
  - MALAISE [None]
